FAERS Safety Report 11079315 (Version 1)
Quarter: 2015Q2

REPORT INFORMATION
  Report Type: Spontaneous
  Country: IE (occurrence: None)
  Receive Date: 20150428
  Receipt Date: 20150428
  Transmission Date: 20150821
  Serious: Yes (Other)
  Sender: FDA-Public Use
  Company Number: 2015SA038302

PATIENT
  Age: 53 Year
  Sex: Female

DRUGS (5)
  1. PLAQUENIL [Suspect]
     Active Substance: HYDROXYCHLOROQUINE SULFATE
     Indication: SJOGREN^S SYNDROME
     Route: 048
     Dates: start: 2009, end: 201503
  2. MAGNESIUM [Concomitant]
     Active Substance: MAGNESIUM
  3. DIFENE (DICLOFENAC SODIUM) [Concomitant]
  4. COD LIVER OIL [Concomitant]
     Active Substance: COD LIVER OIL
  5. KRILL OIL [Concomitant]
     Active Substance: DIETARY SUPPLEMENT

REACTIONS (24)
  - Fatigue [None]
  - Dyspnoea [None]
  - Pruritus [None]
  - Dry eye [None]
  - Disturbance in attention [None]
  - Myalgia [None]
  - Photophobia [None]
  - Muscle spasms [None]
  - Muscular weakness [None]
  - Paraesthesia [None]
  - Chest discomfort [None]
  - Off label use [None]
  - Sjogren^s syndrome [None]
  - Musculoskeletal stiffness [None]
  - Pallor [None]
  - Increased tendency to bruise [None]
  - Eye disorder [None]
  - Platelet count decreased [None]
  - Toxicity to various agents [None]
  - Arthralgia [None]
  - White blood cell count decreased [None]
  - Condition aggravated [None]
  - Bone pain [None]
  - Movement disorder [None]
